FAERS Safety Report 8297465-4 (Version None)
Quarter: 2012Q2

REPORT INFORMATION
  Report Type: 
  Country: None (occurrence: None)
  Receive Date: 20120419
  Receipt Date: 20120411
  Transmission Date: 20120825
  Serious: Yes (Other)
  Sender: FDA-Public Use
  Company Number: CA-JNJFOC-20120406346

PATIENT
  Sex: Female
  Weight: 54 kg

DRUGS (9)
  1. REMICADE [Suspect]
     Indication: RHEUMATOID ARTHRITIS
     Route: 042
     Dates: start: 20090604
  2. FOLIC ACID [Concomitant]
     Route: 065
  3. VITAMIN B-12 [Concomitant]
     Route: 065
  4. CRESTOR [Concomitant]
     Route: 065
  5. IRON [Concomitant]
     Route: 065
  6. SYNTHROID [Concomitant]
     Route: 065
  7. HYDROQUINONE [Concomitant]
     Route: 065
  8. EFFEXOR [Concomitant]
     Route: 065
  9. METHOTREXATE SODIUM [Concomitant]
     Route: 065

REACTIONS (2)
  - FALL [None]
  - LIGAMENT SPRAIN [None]
